FAERS Safety Report 5090010-6 (Version None)
Quarter: 2006Q3

REPORT INFORMATION
  Report Type: 
  Country: None (occurrence: None)
  Receive Date: 20060731
  Receipt Date: 20060613
  Transmission Date: 20061208
  Serious: Yes (Other)
  Sender: FDA-Public Use
  Company Number: 200612983BWH

PATIENT
  Sex: Female

DRUGS (2)
  1. AVELOX [Suspect]
     Indication: PNEUMONIA
  2. AVELOX [Suspect]
     Indication: SINUSITIS

REACTIONS (2)
  - PLATELET COUNT DECREASED [None]
  - THROMBOCYTOPENIA [None]
